FAERS Safety Report 19922542 (Version 2)
Quarter: 2021Q4

REPORT INFORMATION
  Report Type: Spontaneous
  Country: FR (occurrence: FR)
  Receive Date: 20211006
  Receipt Date: 20211020
  Transmission Date: 20220303
  Serious: Yes (Other)
  Sender: FDA-Public Use
  Company Number: FR-002147023-NVSC2021FR125931

PATIENT
  Sex: Male
  Weight: 51 kg

DRUGS (6)
  1. ONDANSETRON [Suspect]
     Active Substance: ONDANSETRON
     Indication: Vestibular neuronitis
     Dosage: 8 MG, QID
     Route: 042
     Dates: start: 20210406, end: 20210406
  2. LUTATHERA [Suspect]
     Active Substance: LUTETIUM OXODOTREOTIDE LU-177
     Indication: Neuroendocrine tumour
     Dosage: 3668 MBQ (HALF DOSE), ONCE/SINGLE
     Route: 042
     Dates: start: 20210406, end: 20210406
  3. CREON [Concomitant]
     Active Substance: PANCRELIPASE AMYLASE\PANCRELIPASE LIPASE\PANCRELIPASE PROTEASE
     Indication: Product used for unknown indication
     Dosage: 10500 MICROLITER, QD, 2 X 3500 UL, TID
     Route: 048
  4. AMLODIPINE [Concomitant]
     Active Substance: AMLODIPINE BESYLATE
     Indication: Product used for unknown indication
     Dosage: 10 MG, QD (EVERY MORNING)
     Route: 048
  5. LANREOTIDE ACETATE [Concomitant]
     Active Substance: LANREOTIDE ACETATE
     Indication: Product used for unknown indication
     Dosage: 120 MG, EVERY 15 DAYS (SLOW RELEASE)
     Route: 058
  6. ARGININE HYDROCHLORIDE [Suspect]
     Active Substance: ARGININE HYDROCHLORIDE
     Indication: Product used for unknown indication
     Dosage: 1 LITER, QDY, (25/25 G),
     Route: 042
     Dates: start: 20210406, end: 20210406

REACTIONS (2)
  - Chronic kidney disease [Not Recovered/Not Resolved]
  - Incorrect dose administered [Recovered/Resolved]

NARRATIVE: CASE EVENT DATE: 20210406
